FAERS Safety Report 6540698-5 (Version None)
Quarter: 2010Q1

REPORT INFORMATION
  Report Type: 
  Country: None (occurrence: None)
  Receive Date: 20100118
  Receipt Date: 20100111
  Transmission Date: 20100710
  Serious: Yes (Death, Hospitalization)
  Sender: FDA-Public Use
  Company Number: FI-ABBOTT-09P-055-0616515-00

PATIENT
  Sex: Female

DRUGS (7)
  1. HUMIRA [Suspect]
     Indication: RHEUMATOID ARTHRITIS
     Dates: start: 20050101
  2. TREXAN [Concomitant]
     Indication: RHEUMATOID ARTHRITIS
     Route: 050
  3. CHLOROQUINE PHOSPHATE [Concomitant]
     Indication: RHEUMATOID ARTHRITIS
  4. CORTISONE [Concomitant]
     Indication: RHEUMATOID ARTHRITIS
     Dosage: BIG DOSES
  5. GOLD [Concomitant]
     Indication: RHEUMATOID ARTHRITIS
  6. GOLD + TREXAN [Concomitant]
     Indication: RHEUMATOID ARTHRITIS
  7. SALAZOPYRIN [Concomitant]
     Indication: RHEUMATOID ARTHRITIS

REACTIONS (12)
  - ANAEMIA [None]
  - DRUG INEFFECTIVE [None]
  - FATIGUE [None]
  - GASTRIC ULCER [None]
  - HAEMATOCHEZIA [None]
  - LARYNGEAL INFLAMMATION [None]
  - LEUKAEMIA [None]
  - OROPHARYNGEAL PAIN [None]
  - PLATELET COUNT ABNORMAL [None]
  - SEPSIS [None]
  - TIBIA FRACTURE [None]
  - WHITE BLOOD CELL DISORDER [None]
